FAERS Safety Report 9460331 (Version 1)
Quarter: 2013Q3

REPORT INFORMATION
  Report Type: Spontaneous
  Country: US (occurrence: US)
  Receive Date: 20130815
  Receipt Date: 20130815
  Transmission Date: 20140515
  Serious: Yes (Hospitalization)
  Sender: FDA-Public Use
  Company Number: US-JNJFOC-20130602514

PATIENT
  Age: 82 Year
  Sex: Female
  Weight: 46.72 kg

DRUGS (4)
  1. XARELTO [Suspect]
     Indication: CEREBROVASCULAR ACCIDENT PROPHYLAXIS
     Route: 048
     Dates: start: 20130515
  2. XARELTO [Suspect]
     Indication: ATRIAL FIBRILLATION
     Route: 048
     Dates: start: 20130515
  3. HEPARIN [Suspect]
     Indication: PRODUCT USED FOR UNKNOWN INDICATION
     Dosage: 8000 UNITS
     Route: 042
     Dates: start: 20130529
  4. HEPARIN [Suspect]
     Indication: PRODUCT USED FOR UNKNOWN INDICATION
     Dosage: 25000 UNITS/0.45 NS TITRATE RATE ??3-25 ML/HOUR
     Route: 042
     Dates: start: 20130529, end: 20130529

REACTIONS (1)
  - Incision site haematoma [Recovered/Resolved]
